FAERS Safety Report 19573265 (Version 1)
Quarter: 2021Q3

REPORT INFORMATION
  Report Type: Other
  Country: CA (occurrence: CA)
  Receive Date: 20210717
  Receipt Date: 20210717
  Transmission Date: 20211014
  Serious: Yes (Hospitalization)
  Sender: FDA-Public Use
  Company Number: CA-ROCHE-2871220

PATIENT
  Sex: Female

DRUGS (11)
  1. WINPRED [Concomitant]
     Active Substance: PREDNISONE
  2. RISEDRONATE [Concomitant]
     Active Substance: RISEDRONATE SODIUM
  3. LASIX [Concomitant]
     Active Substance: FUROSEMIDE
  4. METHOTREXATE. [Concomitant]
     Active Substance: METHOTREXATE
  5. CALCIUM [Concomitant]
     Active Substance: CALCIUM
  6. FOLIC ACID. [Concomitant]
     Active Substance: FOLIC ACID
  7. ACTEMRA [Suspect]
     Active Substance: TOCILIZUMAB
     Indication: PRODUCT USED FOR UNKNOWN INDICATION
     Route: 058
     Dates: start: 20201221
  8. LEFLUNOMIDE. [Concomitant]
     Active Substance: LEFLUNOMIDE
  9. LISINOPRIL. [Concomitant]
     Active Substance: LISINOPRIL
  10. PREGABALIN. [Concomitant]
     Active Substance: PREGABALIN
  11. XARELTO [Concomitant]
     Active Substance: RIVAROXABAN

REACTIONS (1)
  - Wound infection [Unknown]

NARRATIVE: CASE EVENT DATE: 2021
